FAERS Safety Report 16398810 (Version 1)
Quarter: 2019Q2

REPORT INFORMATION
  Report Type: Report from Study
  Country: JP (occurrence: JP)
  Receive Date: 20190606
  Receipt Date: 20190606
  Transmission Date: 20190711
  Serious: Yes (Death, Hospitalization, Other)
  Sender: FDA-Public Use
  Company Number: JP-ACTELION-A-CH2017-150029

PATIENT
  Age: 67 Year
  Sex: Female

DRUGS (16)
  1. FEBURIC [Concomitant]
     Active Substance: FEBUXOSTAT
  2. URSODEOXYCHOLIC ACID [Concomitant]
     Active Substance: URSODIOL
  3. LIVACT [Concomitant]
     Active Substance: AMINO ACIDS
  4. KARY UNI [Concomitant]
     Active Substance: PIRENOXINE
  5. THYRADIN S [Concomitant]
     Active Substance: LEVOTHYROXINE SODIUM
  6. SPIRONOLACTONE. [Concomitant]
     Active Substance: SPIRONOLACTONE
  7. ADEMPAS [Concomitant]
     Active Substance: RIOCIGUAT
  8. SAMSCA [Concomitant]
     Active Substance: TOLVAPTAN
  9. FERROMIA [Concomitant]
     Active Substance: SODIUM FERROUS CITRATE
  10. OPSUMIT [Suspect]
     Active Substance: MACITENTAN
     Indication: PORTOPULMONARY HYPERTENSION
     Dosage: 10 MG, QD
     Route: 048
     Dates: start: 20160811
  11. FERROUS CITRATE NA [Concomitant]
     Active Substance: SODIUM FERROUS CITRATE
  12. FUROSEMIDE. [Concomitant]
     Active Substance: FUROSEMIDE
  13. PARIET [Concomitant]
     Active Substance: RABEPRAZOLE SODIUM
  14. TREPROST [Concomitant]
     Active Substance: TREPROSTINIL
  15. REBAMIPIDE [Concomitant]
     Active Substance: REBAMIPIDE
  16. OXYGEN. [Concomitant]
     Active Substance: OXYGEN

REACTIONS (11)
  - Aspartate aminotransferase increased [Not Recovered/Not Resolved]
  - Hepatic cirrhosis [Fatal]
  - Gastrointestinal vascular malformation haemorrhagic [Not Recovered/Not Resolved]
  - Transfusion [Unknown]
  - Right ventricular failure [Recovering/Resolving]
  - Haemorrhoidal haemorrhage [Not Recovered/Not Resolved]
  - Concomitant disease aggravated [Recovering/Resolving]
  - Alanine aminotransferase increased [Not Recovered/Not Resolved]
  - Blood urea increased [Not Recovered/Not Resolved]
  - Haemostasis [Unknown]
  - Haemorrhoids [Recovering/Resolving]

NARRATIVE: CASE EVENT DATE: 20160901
